FAERS Safety Report 8037228-8 (Version None)
Quarter: 2012Q1

REPORT INFORMATION
  Report Type: 
  Country: None (occurrence: None)
  Receive Date: 20120109
  Receipt Date: 20111227
  Transmission Date: 20120608
  Serious: Yes (Hospitalization, Other)
  Sender: FDA-Public Use
  Company Number: 2012P1000012

PATIENT
  Age: 28 Year
  Sex: Female
  Weight: 67 kg

DRUGS (1)
  1. DIPHENHYDRAMINE HCL [Suspect]
     Indication: INTENTIONAL OVERDOSE
     Dosage: 1450 MG;X1;PO
     Route: 048

REACTIONS (12)
  - LIVEDO RETICULARIS [None]
  - CONVULSION [None]
  - SUICIDE ATTEMPT [None]
  - TACHYCARDIA [None]
  - RHABDOMYOLYSIS [None]
  - BODY TEMPERATURE DECREASED [None]
  - LOSS OF CONSCIOUSNESS [None]
  - MUCOSAL DRYNESS [None]
  - COMPARTMENT SYNDROME [None]
  - RENAL FAILURE [None]
  - ALCOHOL USE [None]
  - INTENTIONAL OVERDOSE [None]
